FAERS Safety Report 5059992-2 (Version None)
Quarter: 2006Q3

REPORT INFORMATION
  Report Type: 
  Country: None (occurrence: None)
  Receive Date: 20060724
  Receipt Date: 20060708
  Transmission Date: 20061208
  Serious: Yes (Hospitalization)
  Sender: FDA-Public Use
  Company Number: BR-GLAXOSMITHKLINE-A0611862A

PATIENT
  Age: 43 Year
  Sex: Female

DRUGS (7)
  1. NIQUITIN [Suspect]
     Indication: SMOKING CESSATION THERAPY
     Dosage: 21MG UNKNOWN
     Route: 065
     Dates: start: 20060708
  2. PAROXETINE HCL [Concomitant]
  3. GINKO BILOBA [Concomitant]
     Dates: start: 20060703
  4. VERTIX [Concomitant]
  5. LORAX [Concomitant]
  6. FLUOXETINA [Concomitant]
     Dosage: 1TAB PER DAY
     Dates: start: 20060703
  7. CLORDIAZEPOXIDO [Concomitant]
     Dosage: 1TAB PER DAY
     Dates: start: 20060705

REACTIONS (5)
  - DIZZINESS [None]
  - NERVOUSNESS [None]
  - PALLOR [None]
  - TREMOR [None]
  - VOMITING [None]
